FAERS Safety Report 9848200 (Version 1)
Quarter: 2014Q1

REPORT INFORMATION
  Report Type: Spontaneous
  Country: DE (occurrence: DE)
  Receive Date: 20140128
  Receipt Date: 20140128
  Transmission Date: 20141002
  Serious: Yes (Life-Threatening)
  Sender: FDA-Public Use
  Company Number: DE-SHIRE-ALL1-2014-00431

PATIENT
  Age: 9 Year
  Sex: Male
  Weight: 33 kg

DRUGS (1)
  1. ELVANSE [Suspect]
     Indication: ATTENTION DEFICIT/HYPERACTIVITY DISORDER
     Dosage: 30 MG, 1X/DAY:QD
     Route: 048
     Dates: start: 20131018, end: 20131118

REACTIONS (4)
  - Suicidal ideation [Recovered/Resolved]
  - Personality change [Recovered/Resolved]
  - Impulse-control disorder [Recovered/Resolved]
  - Initial insomnia [Recovered/Resolved]
